FAERS Safety Report 24552259 (Version 1)
Quarter: 2024Q4

REPORT INFORMATION
  Report Type: Spontaneous
  Country: FR (occurrence: FR)
  Receive Date: 20241026
  Receipt Date: 20241026
  Transmission Date: 20250114
  Serious: Yes (Other)
  Sender: ALEXION PHARMACEUTICALS
  Company Number: None

PATIENT
  Age: 86 Year

DRUGS (8)
  1. CALQUENCE [Suspect]
     Active Substance: ACALABRUTINIB
     Indication: Chronic lymphocytic leukaemia
     Dosage: UNK
  2. CALQUENCE [Suspect]
     Active Substance: ACALABRUTINIB
     Dosage: UNK
  3. CALQUENCE [Suspect]
     Active Substance: ACALABRUTINIB
     Dosage: UNK
  4. CALQUENCE [Suspect]
     Active Substance: ACALABRUTINIB
     Dosage: UNK
  5. SINTROM [Interacting]
     Active Substance: ACENOCOUMAROL
     Dosage: UNK
  6. SINTROM [Interacting]
     Active Substance: ACENOCOUMAROL
     Dosage: UNK
  7. SINTROM [Interacting]
     Active Substance: ACENOCOUMAROL
     Dosage: UNK
  8. SINTROM [Interacting]
     Active Substance: ACENOCOUMAROL
     Dosage: UNK

REACTIONS (3)
  - Spontaneous haematoma [Recovered/Resolved]
  - Haematuria [Recovered/Resolved]
  - Drug interaction [Recovered/Resolved]
